FAERS Safety Report 10843961 (Version 1)
Quarter: 2015Q1

REPORT INFORMATION
  Report Type: Report from Study
  Country: US (occurrence: US)
  Receive Date: 20150220
  Receipt Date: 20150220
  Transmission Date: 20150721
  Serious: No
  Sender: FDA-Public Use
  Company Number: US-ABBVIE-14P-163-1274032-00

PATIENT
  Age: 61 Year
  Sex: Male

DRUGS (5)
  1. PREDNISONE. [Concomitant]
     Active Substance: PREDNISONE
     Indication: PRODUCT USED FOR UNKNOWN INDICATION
  2. HUMIRA [Suspect]
     Active Substance: ADALIMUMAB
     Dates: start: 20140814
  3. HUMIRA [Suspect]
     Active Substance: ADALIMUMAB
     Indication: CROHN^S DISEASE
     Dates: start: 20140717, end: 20140717
  4. PREDNISONE. [Concomitant]
     Active Substance: PREDNISONE
     Dosage: TAPERING TAPERING DOWN TO 20, THEN 10 TWO WEEKDS AFTER THAT
  5. HUMIRA [Suspect]
     Active Substance: ADALIMUMAB
     Dates: start: 20140731, end: 20140731

REACTIONS (1)
  - Drug effect incomplete [Not Recovered/Not Resolved]

NARRATIVE: CASE EVENT DATE: 20140717
